FAERS Safety Report 12893225 (Version 1)
Quarter: 2016Q4

REPORT INFORMATION
  Report Type: Spontaneous
  Country: DK (occurrence: DK)
  Receive Date: 20161028
  Receipt Date: 20161028
  Transmission Date: 20170207
  Serious: Yes (Death, Hospitalization)
  Sender: FDA-Public Use
  Company Number: DK-TEVA-704934ACC

PATIENT
  Age: 86 Year
  Sex: Female

DRUGS (6)
  1. TRADOLAN [Concomitant]
     Active Substance: TRAMADOL
     Indication: PAIN
  2. HJERTEMAGNYL [Concomitant]
     Active Substance: ASPIRIN\MAGNESIUM OXIDE
     Indication: THROMBOSIS PROPHYLAXIS
  3. IBUPROFEN ^TEVA^ [Suspect]
     Active Substance: IBUPROFEN
     Indication: PAIN
     Dosage: 1200 MILLIGRAM DAILY;
     Route: 048
     Dates: start: 20160930, end: 20161003
  4. CENTYL MED KALIUMKLORID [Concomitant]
     Active Substance: BENDROFLUMETHIAZIDE\POTASSIUM CHLORIDE
     Indication: DIURETIC THERAPY
  5. PAMOL [Concomitant]
     Active Substance: ACETAMINOPHEN
     Indication: PAIN
  6. PREDNISOLON ^DAK^ [Concomitant]
     Active Substance: PREDNISOLONE
     Indication: ARTHRALGIA

REACTIONS (3)
  - Abdominal pain [Not Recovered/Not Resolved]
  - Duodenal ulcer perforation [Fatal]
  - Peritonitis [Fatal]

NARRATIVE: CASE EVENT DATE: 201610
